FAERS Safety Report 15689882 (Version 5)
Quarter: 2019Q1

REPORT INFORMATION
  Report Type: Report from Study
  Country: CA (occurrence: CA)
  Receive Date: 20181205
  Receipt Date: 20190322
  Transmission Date: 20190417
  Serious: Yes (Hospitalization, Other)
  Sender: FDA-Public Use
  Company Number: PHHY2018CA144527

PATIENT
  Age: 17 Year
  Sex: Female

DRUGS (3)
  1. REVOLADE [Suspect]
     Active Substance: ELTROMBOPAG
     Dosage: 25 MG, QD
     Route: 048
     Dates: start: 20181102, end: 20181229
  2. REVOLADE [Suspect]
     Active Substance: ELTROMBOPAG
     Dosage: 12.5 MG, QD
     Route: 048
     Dates: start: 20181230, end: 20190103
  3. REVOLADE [Suspect]
     Active Substance: ELTROMBOPAG
     Indication: THROMBOCYTOPENIC PURPURA
     Dosage: 50 MG, QD
     Route: 048
     Dates: start: 20181018, end: 20181101

REACTIONS (12)
  - Dizziness [Recovered/Resolved]
  - Eosinophil count increased [Unknown]
  - Malaise [Recovered/Resolved]
  - Monocyte count increased [Unknown]
  - Vision blurred [Recovered/Resolved]
  - White blood cell count increased [Unknown]
  - Platelet count decreased [Recovered/Resolved]
  - Mean platelet volume increased [Unknown]
  - Neutrophil count increased [Unknown]
  - Migraine [Recovered/Resolved]
  - Headache [Recovered/Resolved]
  - Vomiting [Recovered/Resolved]

NARRATIVE: CASE EVENT DATE: 20181021
